FAERS Safety Report 26103802 (Version 1)
Quarter: 2025Q4

REPORT INFORMATION
  Report Type: Spontaneous
  Country: US (occurrence: US)
  Receive Date: 20251129
  Receipt Date: 20251129
  Transmission Date: 20260118
  Serious: No
  Sender: ALEXION PHARMACEUTICALS
  Company Number: US-AstraZeneca-CH-01000429A

PATIENT
  Sex: Male

DRUGS (1)
  1. FARXIGA [Suspect]
     Active Substance: DAPAGLIFLOZIN PROPANEDIOL
     Dosage: 5 MILLIGRAM
     Route: 065

REACTIONS (8)
  - Pruritus [Unknown]
  - Pruritus [Unknown]
  - Bone disorder [Unknown]
  - Formication [Unknown]
  - Increased viscosity of upper respiratory secretion [Unknown]
  - Epistaxis [Unknown]
  - Incorrect dose administered [Unknown]
  - Incorrect dose administered by product [Unknown]
